FAERS Safety Report 8762570 (Version 1)
Quarter: 2012Q4

REPORT INFORMATION
  Report Type: 
  Country: CN (occurrence: CN)
  Receive Date: 20120830
  Receipt Date: 20120830
  Transmission Date: 20130627
  Serious: Yes (Other)
  Sender: FDA-Public Use
  Company Number: CN-ROCHE-1009660

PATIENT
  Age: 47 Year
  Sex: Male

DRUGS (4)
  1. ROCEPHIN [Suspect]
     Indication: INFECTION
     Dosage: IV push
     Route: 042
     Dates: start: 20091215, end: 20091223
  2. CITICOLINE [Concomitant]
     Indication: VASCULAR RESISTANCE SYSTEMIC INCREASED
     Dates: start: 20091215
  3. SODIUM VALPROATE [Concomitant]
     Indication: EPILEPSY
     Dates: start: 20091215
  4. GANGLIOSIDE [Concomitant]
     Indication: NERVE INJURY
     Dates: start: 20091215

REACTIONS (2)
  - Coagulopathy [Recovered/Resolved]
  - Cerebral haematoma [Unknown]
